FAERS Safety Report 6631840-6 (Version None)
Quarter: 2010Q1

REPORT INFORMATION
  Report Type: 
  Country: None (occurrence: None)
  Receive Date: 20100312
  Receipt Date: 20100305
  Transmission Date: 20100710
  Serious: Yes (Death, Other)
  Sender: FDA-Public Use
  Company Number: JP-BAXTER-2010BH006337

PATIENT
  Age: 34 Year
  Sex: Female

DRUGS (5)
  1. HOLOXAN BAXTER [Suspect]
     Indication: OSTEOSARCOMA LOCALISED
     Route: 065
     Dates: start: 20021001
  2. ETOPOSIDE [Suspect]
     Indication: OSTEOSARCOMA LOCALISED
     Route: 065
     Dates: start: 20031001
  3. CISPLATIN [Suspect]
     Indication: OSTEOSARCOMA LOCALISED
     Route: 065
  4. DOXORUBICIN [Suspect]
     Indication: OSTEOSARCOMA LOCALISED
     Route: 065
  5. METHOTREXATE [Suspect]
     Indication: OSTEOSARCOMA LOCALISED
     Route: 065

REACTIONS (1)
  - ACUTE MYELOID LEUKAEMIA [None]
